FAERS Safety Report 6630870-8 (Version None)
Quarter: 2010Q1

REPORT INFORMATION
  Report Type: 
  Country: None (occurrence: None)
  Receive Date: 20100311
  Receipt Date: 20100303
  Transmission Date: 20100710
  Serious: Yes (Other)
  Sender: FDA-Public Use
  Company Number: CH-ROCHE-688454

PATIENT
  Sex: Female

DRUGS (1)
  1. XELODA [Suspect]
     Dosage: RECEIVED THREE CYCLES
     Route: 048
     Dates: start: 20090803, end: 20091002

REACTIONS (5)
  - ABDOMINAL PAIN [None]
  - COLONIC PSEUDO-OBSTRUCTION [None]
  - DIARRHOEA [None]
  - PALMAR-PLANTAR ERYTHRODYSAESTHESIA SYNDROME [None]
  - PYREXIA [None]
